FAERS Safety Report 25229872 (Version 1)
Quarter: 2025Q2

REPORT INFORMATION
  Report Type: Spontaneous
  Country: US (occurrence: US)
  Receive Date: 20250423
  Receipt Date: 20250423
  Transmission Date: 20250717
  Serious: No
  Sender: GLENMARK
  Company Number: US-GLENMARK PHARMACEUTICALS-2025GMK097100

PATIENT

DRUGS (1)
  1. ROPINIROLE HYDROCHLORIDE [Suspect]
     Active Substance: ROPINIROLE HYDROCHLORIDE
     Indication: Product used for unknown indication
     Dosage: 4 DOSAGE FORM QD (4 OF THE ROPINOLE A DAY)
     Route: 065

REACTIONS (2)
  - Product use issue [Unknown]
  - Drug ineffective [Unknown]
